FAERS Safety Report 10702172 (Version 4)
Quarter: 2015Q2

REPORT INFORMATION
  Report Type: Report from Study
  Country: US (occurrence: US)
  Receive Date: 20150109
  Receipt Date: 20150406
  Transmission Date: 20150821
  Serious: Yes (Hospitalization, Other)
  Sender: FDA-Public Use
  Company Number: US-ABBVIE-14K-163-1317820-00

PATIENT
  Age: 78 Year
  Sex: Female
  Weight: 44.04 kg

DRUGS (13)
  1. VITAMINS [Concomitant]
     Active Substance: VITAMINS
     Indication: VITAMIN SUPPLEMENTATION
  2. HUMIRA [Suspect]
     Active Substance: ADALIMUMAB
     Indication: CROHN^S DISEASE
     Route: 065
     Dates: start: 200710, end: 200710
  3. ZITHROMAX [Suspect]
     Active Substance: AZITHROMYCIN DIHYDRATE
     Indication: PNEUMONIA
     Route: 042
     Dates: start: 20141208
  4. HUMIRA [Suspect]
     Active Substance: ADALIMUMAB
     Route: 065
     Dates: start: 200710, end: 200710
  5. HYOSCYAMINE SULFATE. [Concomitant]
     Active Substance: HYOSCYAMINE SULFATE
     Indication: PRODUCT USED FOR UNKNOWN INDICATION
  6. MULTIVITAMIN [Concomitant]
     Active Substance: VITAMINS
     Indication: PRODUCT USED FOR UNKNOWN INDICATION
  7. IRON [Concomitant]
     Active Substance: IRON
     Indication: MINERAL SUPPLEMENTATION
  8. IRON [Concomitant]
     Active Substance: IRON
     Indication: CROHN^S DISEASE
  9. CEFTRIAXON [Suspect]
     Active Substance: CEFTRIAXONE
     Route: 042
     Dates: start: 20141208
  10. VITAMINS [Concomitant]
     Active Substance: VITAMINS
     Indication: CROHN^S DISEASE
  11. HUMIRA [Suspect]
     Active Substance: ADALIMUMAB
     Route: 065
     Dates: start: 200711
  12. CEFTRIAXON [Suspect]
     Active Substance: CEFTRIAXONE
     Indication: PNEUMONIA
     Route: 048
     Dates: start: 20141207, end: 20141207
  13. LOMOTIL [Concomitant]
     Active Substance: ATROPINE SULFATE\DIPHENOXYLATE HYDROCHLORIDE
     Indication: PRODUCT USED FOR UNKNOWN INDICATION

REACTIONS (4)
  - Swollen tongue [Recovered/Resolved]
  - Lung neoplasm malignant [Not Recovered/Not Resolved]
  - Pneumonia [Recovering/Resolving]
  - Iron deficiency anaemia [Unknown]

NARRATIVE: CASE EVENT DATE: 201412
